FAERS Safety Report 15732990 (Version 1)
Quarter: 2018Q4

REPORT INFORMATION
  Report Type: Report from Study
  Country: BR (occurrence: BR)
  Receive Date: 20181218
  Receipt Date: 20181218
  Transmission Date: 20190205
  Serious: Yes (Hospitalization)
  Sender: FDA-Public Use
  Company Number: BR-UCBSA-2018054016

PATIENT
  Age: 34 Year
  Sex: Male
  Weight: 73 kg

DRUGS (2)
  1. LACOSAMIDE. [Suspect]
     Active Substance: LACOSAMIDE
     Indication: EPILEPSY
     Dosage: STRENGTH: 100MG; 1 TABLET IN THE MORNING AND 2 TABLETS IN THE EVENING
     Route: 048
     Dates: start: 201712
  2. URBANIL [Concomitant]
     Active Substance: CLOBAZAM
     Indication: EPILEPSY

REACTIONS (4)
  - Seizure [Recovered/Resolved]
  - Intentional product misuse [Unknown]
  - Gait disturbance [Not Recovered/Not Resolved]
  - Depression [Not Recovered/Not Resolved]

NARRATIVE: CASE EVENT DATE: 201712
